FAERS Safety Report 15230043 (Version 1)
Quarter: 2018Q3

REPORT INFORMATION
  Report Type: Spontaneous
  Country: US (occurrence: US)
  Receive Date: 20180802
  Receipt Date: 20180802
  Transmission Date: 20181010
  Serious: Yes (Other)
  Sender: FDA-Public Use
  Company Number: US-ACCORD-062876

PATIENT
  Age: 56 Year
  Sex: Female
  Weight: 88 kg

DRUGS (13)
  1. DOCETAXEL ACCORD [Suspect]
     Active Substance: DOCETAXEL
     Indication: BREAST CANCER
     Dosage: ALSO RECEIVED ON 06?AUG?2015, 27?AUG?2015, 17?SEP?2015, 08?OCT?2015, 29?OCT?2015, 19?NOV?2015
     Dates: start: 20150707, end: 20151119
  2. PROAIR HFA [Concomitant]
     Active Substance: ALBUTEROL SULFATE
     Dosage: STRENGTH: 90 UG
     Dates: start: 2015
  3. CYANOCOBALAMIN/CYANOCOBALAMIN ZINC TANNATE/CYANOCOBALAMIN?TANNIN COMPLEX [Concomitant]
     Dosage: STRENGTH: 1000 MCG
     Route: 048
  4. COMPAZINE [Concomitant]
     Active Substance: PROCHLORPERAZINE MALEATE
     Dosage: STRENGTH: 10 MG
     Route: 048
  5. ADVAIR DISKUS [Concomitant]
     Active Substance: FLUTICASONE PROPIONATE\SALMETEROL XINAFOATE
     Dosage: STRENGTH: 250?50 UG
     Dates: start: 2007, end: 2015
  6. DECADRON [Concomitant]
     Active Substance: DEXAMETHASONE
     Dosage: STRENGTH: 4 MG
     Route: 048
  7. COLECALCIFEROL [Concomitant]
     Active Substance: CHOLECALCIFEROL
     Dosage: STRENGTH: 1000 UNIT
     Dates: start: 2013
  8. CENTRUM SILVER [Concomitant]
     Active Substance: MINERALS\VITAMINS
     Dates: start: 2007
  9. CYTOXAN [Concomitant]
     Active Substance: CYCLOPHOSPHAMIDE
  10. BIOTIN [Concomitant]
     Active Substance: BIOTIN
     Dosage: STRENGTH: 10 MG
     Dates: start: 2013
  11. ZOFRAN [Concomitant]
     Active Substance: ONDANSETRON HYDROCHLORIDE
     Dosage: STRENGTH: 8 MG
     Route: 048
  12. PARAPLATIN [Concomitant]
     Active Substance: CARBOPLATIN
  13. NORCO [Concomitant]
     Active Substance: ACETAMINOPHEN\HYDROCODONE BITARTRATE
     Indication: PAIN
     Dosage: STRENGTH: 5?325 MG,??DOSE: 1?2 TABLET EVERY 6 HOUR AS NEED
     Route: 048

REACTIONS (1)
  - Alopecia [Not Recovered/Not Resolved]

NARRATIVE: CASE EVENT DATE: 201605
